FAERS Safety Report 7574227-4 (Version None)
Quarter: 2011Q2

REPORT INFORMATION
  Report Type: 
  Country: None (occurrence: None)
  Receive Date: 20110627
  Receipt Date: 20110526
  Transmission Date: 20111010
  Serious: Yes (Other)
  Sender: FDA-Public Use
  Company Number: US-BAYER-201038177NA

PATIENT
  Age: 32 Year
  Sex: Female
  Weight: 79 kg

DRUGS (8)
  1. YASMIN [Suspect]
     Indication: CONTRACEPTION
     Dosage: UNK
     Dates: start: 20050101, end: 20080101
  2. IBUPROFEN [Concomitant]
     Dosage: UNK UNK, PRN
  3. LEXAPRO [Concomitant]
     Route: 048
  4. PROVENIL INHALER [Concomitant]
     Dosage: 1 PUFF AS NEEDED
  5. YAZ [Suspect]
     Indication: CONTRACEPTION
     Dosage: UNK
     Dates: start: 20050101, end: 20080101
  6. YASMIN [Suspect]
     Dosage: UNK
     Dates: start: 20061025, end: 20070220
  7. XANAX [Concomitant]
     Dosage: UNK UNK, BID
     Route: 048
  8. YAZ [Suspect]
     Dosage: UNK
     Dates: start: 20070310, end: 20070621

REACTIONS (6)
  - BILE DUCT STONE [None]
  - CHOLECYSTITIS ACUTE [None]
  - GALLBLADDER DISORDER [None]
  - BILE DUCT OBSTRUCTION [None]
  - HEPATIC ENZYME INCREASED [None]
  - CHOLELITHIASIS [None]
